FAERS Safety Report 11272824 (Version 2)
Quarter: 2015Q3

REPORT INFORMATION
  Report Type: Report from Study
  Country: BG (occurrence: BG)
  Receive Date: 20150715
  Receipt Date: 20150804
  Transmission Date: 20151125
  Serious: Yes (Hospitalization)
  Sender: FDA-Public Use
  Company Number: BG-ASTRAZENECA-2015SE66546

PATIENT
  Age: 20190 Day
  Sex: Female

DRUGS (15)
  1. NEOTRI MR [Concomitant]
     Indication: ANGINA PECTORIS
     Route: 048
  2. INSULIN [Concomitant]
     Active Substance: INSULIN NOS
     Indication: DIABETES MELLITUS
     Route: 058
  3. SORTIS [Concomitant]
     Active Substance: ATORVASTATIN
     Indication: DYSLIPIDAEMIA
     Route: 048
  4. MILGAMMA [Concomitant]
     Active Substance: VITAMIN B
     Indication: POLYNEUROPATHY
     Route: 048
  5. NEOTRI MR [Concomitant]
     Indication: HYPERTENSION
     Route: 048
  6. ASPIRIN PROTECT [Concomitant]
     Active Substance: ASPIRIN
     Indication: PROPHYLAXIS
     Route: 048
  7. AMLATOR [Concomitant]
     Active Substance: AMLODIPINE BESYLATE\ATORVASTATIN CALCIUM TRIHYDRATE
     Indication: ANGINA PECTORIS
     Route: 048
  8. NEBIVOLOL. [Concomitant]
     Active Substance: NEBIVOLOL
     Indication: ANGINA PECTORIS
     Route: 048
  9. NEOSORBID [Concomitant]
     Indication: ANGINA PECTORIS
     Route: 048
  10. AMLATOR [Concomitant]
     Active Substance: AMLODIPINE BESYLATE\ATORVASTATIN CALCIUM TRIHYDRATE
     Indication: HYPERTENSION
     Route: 048
  11. NEBIVOLOL. [Concomitant]
     Active Substance: NEBIVOLOL
     Indication: HYPERTENSION
     Route: 048
  12. AZD6140 [Suspect]
     Active Substance: TICAGRELOR
     Indication: CARDIOVASCULAR EVENT PROPHYLAXIS
     Route: 048
     Dates: start: 20150707
  13. AZD6140 [Suspect]
     Active Substance: TICAGRELOR
     Indication: CARDIOVASCULAR EVENT PROPHYLAXIS
     Route: 048
     Dates: start: 20150107, end: 20150119
  14. AZD6140 [Suspect]
     Active Substance: TICAGRELOR
     Indication: CARDIOVASCULAR EVENT PROPHYLAXIS
     Route: 048
     Dates: start: 20150221, end: 20150702
  15. NEOSORBID [Concomitant]
     Indication: HYPERTENSION
     Route: 048

REACTIONS (1)
  - Cardiac failure [Recovered/Resolved]

NARRATIVE: CASE EVENT DATE: 20150702
